FAERS Safety Report 6415357-X (Version None)
Quarter: 2009Q4

REPORT INFORMATION
  Report Type: 
  Country: None (occurrence: None)
  Receive Date: 20091027
  Receipt Date: 20091015
  Transmission Date: 20100525
  Serious: Yes (Other)
  Sender: FDA-Public Use
  Company Number: PHHY2009CA44832

PATIENT
  Sex: Male

DRUGS (4)
  1. CLOZARIL [Suspect]
     Dosage: UNK
     Dates: start: 20090512
  2. NEXIUM [Concomitant]
  3. EFFEXOR [Concomitant]
  4. GLUCOPHAGE [Concomitant]

REACTIONS (1)
  - WEIGHT INCREASED [None]
